FAERS Safety Report 25853097 (Version 6)
Quarter: 2025Q4

REPORT INFORMATION
  Report Type: Spontaneous
  Country: PA (occurrence: PA)
  Receive Date: 20250926
  Receipt Date: 20251119
  Transmission Date: 20260118
  Serious: No
  Sender: PFIZER
  Company Number: PA-PFIZER INC-PV202500114371

PATIENT
  Age: 8 Year
  Sex: Male
  Weight: 23.8 kg

DRUGS (2)
  1. GENOTROPIN [Suspect]
     Active Substance: SOMATROPIN
     Indication: Growth hormone deficiency
     Dosage: EVERY NIGHT
     Route: 058
     Dates: start: 2021, end: 20250914
  2. GENOTROPIN [Suspect]
     Active Substance: SOMATROPIN
     Dosage: UNK

REACTIONS (3)
  - Drug dose omission by device [Unknown]
  - Device information output issue [Unknown]
  - Intercepted product administration error [Unknown]

NARRATIVE: CASE EVENT DATE: 20250914
